FAERS Safety Report 11157627 (Version 2)
Quarter: 2015Q2

REPORT INFORMATION
  Report Type: Spontaneous
  Country: US (occurrence: US)
  Receive Date: 20150603
  Receipt Date: 20150616
  Transmission Date: 20150821
  Serious: Yes (Other)
  Sender: FDA-Public Use
  Company Number: US-JNJCP-30000285247

PATIENT
  Sex: Female
  Weight: 73 kg

DRUGS (1)
  1. AVEENO BABY CONTINUOUS PROTECTION SUNSCREEN BROAD SPECTRUM SPF55 [Suspect]
     Active Substance: AVOBENZONE\HOMOSALATE\OCTISALATE\OCTOCRYLENE\OXYBENZONE
     Indication: PROPHYLAXIS
     Dosage: QUARTER SIZED AMOUNT, USED ONLY ONCE
     Route: 061
     Dates: start: 20150510, end: 20150510

REACTIONS (5)
  - Application site warmth [Recovering/Resolving]
  - Application site swelling [Recovering/Resolving]
  - Application site dryness [Recovering/Resolving]
  - Application site pruritus [Recovering/Resolving]
  - Application site erythema [Recovering/Resolving]

NARRATIVE: CASE EVENT DATE: 201505
